FAERS Safety Report 5175340-1 (Version None)
Quarter: 2006Q4

REPORT INFORMATION
  Report Type: 
  Country: None (occurrence: None)
  Receive Date: 20061211
  Receipt Date: 20061211
  Transmission Date: 20070319
  Serious: No
  Sender: FDA-Public Use
  Company Number: None

PATIENT
  Age: 35 Year
  Sex: Male
  Weight: 122.4712 kg

DRUGS (2)
  1. COPPERTONE SPORT SPF 30 SCHERING-PLOUGH [Suspect]
     Indication: PROPHYLAXIS
     Dosage: ONE APPLICATION CUTANEOUS
     Route: 003
     Dates: start: 20060917, end: 20060917
  2. COPPERTONE SPORT SPF 30 SCHERING-PLOUGH [Suspect]
     Indication: SUNBURN
     Dosage: ONE APPLICATION CUTANEOUS
     Route: 003
     Dates: start: 20060917, end: 20060917

REACTIONS (2)
  - DERMATITIS CONTACT [None]
  - SCAR [None]
